FAERS Safety Report 4634501-8 (Version None)
Quarter: 2005Q2

REPORT INFORMATION
  Report Type: 
  Country: None (occurrence: None)
  Receive Date: 20050413
  Receipt Date: 20050117
  Transmission Date: 20051028
  Serious: Yes (Hospitalization)
  Sender: FDA-Public Use
  Company Number: GB-MERCK-0501GBR00165

PATIENT
  Age: 58 Year
  Sex: Female

DRUGS (5)
  1. SINGULAIR [Suspect]
     Indication: ASTHMA
     Route: 048
     Dates: start: 20000101
  2. INSULIN HUMAN [Concomitant]
     Indication: DIABETES MELLITUS
     Route: 065
  3. ACETAMINOPHEN [Concomitant]
     Route: 065
  4. LEVOTHYROXINE SODIUM [Concomitant]
     Route: 065
  5. CLOPIDOGREL BISULFATE [Suspect]
     Route: 065

REACTIONS (14)
  - ARTERIAL OCCLUSIVE DISEASE [None]
  - ARTHRITIS INFECTIVE [None]
  - DYSPEPSIA [None]
  - FEAR [None]
  - FEELING ABNORMAL [None]
  - IRRITABILITY [None]
  - LOGORRHOEA [None]
  - MUSCLE SPASMS [None]
  - MYALGIA [None]
  - MYOCARDIAL INFARCTION [None]
  - NERVOUS SYSTEM DISORDER [None]
  - PANIC ATTACK [None]
  - PRURITUS [None]
  - RESTLESSNESS [None]
